FAERS Safety Report 6944651-9 (Version None)
Quarter: 2010Q3

REPORT INFORMATION
  Report Type: 
  Country: None (occurrence: None)
  Receive Date: 20100823
  Receipt Date: 20091006
  Transmission Date: 20110219
  Serious: Yes (Other)
  Sender: FDA-Public Use
  Company Number: UK-2009-00321

PATIENT
  Age: 79 Year
  Sex: Male
  Weight: 70 kg

DRUGS (8)
  1. LISINOPRIL [Suspect]
     Indication: HYPERTENSION
     Dosage: 5 MG (1 IN 1 D), ORAL
     Route: 048
  2. FLOMAX [Suspect]
     Indication: POLLAKIURIA
     Dosage: 0.4 MG ORAL
     Route: 048
     Dates: start: 20070906, end: 20070908
  3. NIFEDIPINE [Suspect]
     Indication: DUODENAL ULCER
     Dosage: 5 MG, ORAL
     Route: 048
  4. CARBOCISTEINE (UNKNOWN) [Concomitant]
  5. COMBIVENT (INHALANT) [Concomitant]
  6. SERETIDE (INHALANT) [Concomitant]
  7. LANSOPRAZOLE (UNKNOWN) [Concomitant]
  8. PARACETAMOL (UNKNOWN) [Concomitant]

REACTIONS (5)
  - DRUG INTERACTION [None]
  - DUODENAL ULCER [None]
  - DYSPNOEA [None]
  - ORTHOSTATIC HYPOTENSION [None]
  - POLLAKIURIA [None]
